FAERS Safety Report 6201783-0 (Version None)
Quarter: 2009Q2

REPORT INFORMATION
  Report Type: 
  Country: None (occurrence: None)
  Receive Date: 20090526
  Receipt Date: 20090521
  Transmission Date: 20091009
  Serious: Yes (Hospitalization, Other)
  Sender: FDA-Public Use
  Company Number: CR-ASTRAZENECA-2008UW26767

PATIENT
  Age: 20793 Day
  Sex: Female

DRUGS (8)
  1. SEROQUEL XR [Suspect]
     Dosage: 300MG
     Route: 048
     Dates: start: 20081006
  2. SEROQUEL XR [Suspect]
     Dosage: 600MG
     Route: 048
     Dates: start: 20081007
  3. SEROQUEL XR [Suspect]
     Dosage: 400MG
     Route: 048
     Dates: start: 20081008, end: 20081130
  4. RISPERIDONE [Concomitant]
  5. GEMFIBROZIL [Concomitant]
     Indication: HYPERCHOLESTEROLAEMIA
     Route: 048
     Dates: start: 20080801
  6. ENALAPRIL MALEATE [Concomitant]
     Indication: HYPERTENSION
     Route: 048
     Dates: start: 20070101
  7. FLUOXETINE HCL [Concomitant]
     Indication: SCHIZOPHRENIA
     Route: 048
     Dates: start: 20070101
  8. PERPHENAZINE [Concomitant]
     Indication: SCHIZOPHRENIA
     Route: 048
     Dates: start: 20070101, end: 20081006

REACTIONS (1)
  - SCHIZOPHRENIA [None]
